FAERS Safety Report 17962289 (Version 1)
Quarter: 2020Q2

REPORT INFORMATION
  Report Type: Spontaneous
  Country: DK (occurrence: DK)
  Receive Date: 20200630
  Receipt Date: 20200630
  Transmission Date: 20200714
  Serious: Yes (Hospitalization)
  Sender: FDA-Public Use
  Company Number: NVSC2020DK172819

PATIENT
  Age: 75 Year
  Sex: Female

DRUGS (27)
  1. BALANCID NOVUM [Concomitant]
     Indication: GASTROOESOPHAGEAL REFLUX DISEASE
     Dosage: 1 DF, PRN (STYRKE: 449MG+104MG)
     Route: 048
     Dates: start: 20200326
  2. TOILAX [Concomitant]
     Active Substance: BISACODYL
     Indication: CONSTIPATION
     Dosage: 10 MG, QD (STYRKE: 5MG)
     Route: 048
     Dates: start: 20170602
  3. KALEORID [Concomitant]
     Active Substance: POTASSIUM CHLORIDE
     Indication: MINERAL SUPPLEMENTATION
     Dosage: 1500 MG, QD (STYRKE 750 MG)
     Route: 048
     Dates: start: 20180222
  4. GANGIDEN [Concomitant]
     Indication: CONSTIPATION
     Dosage: 1 DF, QD (STYRKE: UKENDT)
     Route: 048
     Dates: start: 20180325
  5. VENTOLINE [Concomitant]
     Active Substance: ALBUTEROL
     Indication: BRONCHOSPASM
     Dosage: 0.2 DF, QD (STYRKE: 0,1MG/DOSIS)
     Route: 055
     Dates: start: 20200407
  6. OXYCONTIN [Concomitant]
     Active Substance: OXYCODONE HYDROCHLORIDE
     Indication: PAIN
     Dosage: 2 DF, QD (STRENGTH 10MG TO MAR-2020 THEN 5MG)
     Route: 048
     Dates: start: 20170602
  7. MULTIVITAMINS [Concomitant]
     Active Substance: VITAMINS
     Indication: VITAMIN SUPPLEMENTATION
     Dosage: 1 DF, QD (STYRKE: UKENDT)
     Route: 048
  8. ATENOLOL. [Suspect]
     Active Substance: ATENOLOL
     Indication: HYPERTENSION
     Dosage: 50 MG, QD
     Route: 048
     Dates: start: 201709, end: 20200325
  9. LOSARTAN. [Suspect]
     Active Substance: LOSARTAN
     Indication: HYPERTENSION
     Dosage: 100 MG, QD
     Route: 048
     Dates: start: 2009, end: 20200406
  10. VITAMIN D [Concomitant]
     Active Substance: VITAMIN D NOS
     Indication: VITAMIN SUPPLEMENTATION
     Dosage: 25 UG, QD
     Route: 048
     Dates: start: 20190826
  11. MOVICOL [Concomitant]
     Active Substance: POLYETHYLENE GLYCOL 3350\POTASSIUM CHLORIDE\SODIUM BICARBONATE\SODIUM CHLORIDE
     Indication: CONSTIPATION
     Dosage: 1 DF, PRN
     Route: 048
     Dates: start: 20170602
  12. PANODIL [Concomitant]
     Active Substance: ACETAMINOPHEN
     Indication: PAIN
     Dosage: UNK (DOSE: VARYING)
     Route: 048
     Dates: start: 20180302
  13. METOCLOPRAMIDE. [Concomitant]
     Active Substance: METOCLOPRAMIDE
     Indication: NAUSEA
     Dosage: 10 MG, PRN
     Route: 048
     Dates: start: 20180302
  14. OXYCODONE PR ACTAVIS [Concomitant]
     Indication: PAIN
     Dosage: 5 MG, PRN
     Route: 048
  15. ELIQUIS [Concomitant]
     Active Substance: APIXABAN
     Indication: THROMBOSIS PROPHYLAXIS
     Dosage: 5 MG, QD (STYRKE: 2,5MG)
     Route: 048
     Dates: start: 20200327
  16. FURIX [Concomitant]
     Indication: DIURETIC THERAPY
     Dosage: UNK (DOSIS: 2 TABL. MORGEN OG 1 TABL. MIDDAG STYRKE: 40MG)
     Route: 048
     Dates: start: 20170603
  17. GABAPENTIN. [Concomitant]
     Active Substance: GABAPENTIN
     Indication: NEURALGIA
     Dosage: 300 MG, QD
     Route: 048
     Dates: start: 20180228
  18. OXYCODONHYDROCHLORID AXCOUNT [Concomitant]
     Indication: PAIN
     Dosage: 5 MG, UNKNOWN (INTERMITTENT)
     Route: 048
  19. LOSARTAN. [Suspect]
     Active Substance: LOSARTAN
     Dosage: 100 MG, QD
     Route: 048
     Dates: start: 20200408
  20. NORVASC [Concomitant]
     Active Substance: AMLODIPINE BESYLATE
     Indication: HYPERTENSION
     Dosage: 5 MG, QD (STYRKE: 5MG)
     Route: 048
     Dates: start: 20180305
  21. BETNOVAT [Concomitant]
     Active Substance: BETAMETHASONE
     Indication: ECZEMA
     Dosage: 1 DF, QD (STYRKE: 1MG/G)
     Route: 003
     Dates: start: 20171127
  22. METOPROLOL SUCCINATE. [Suspect]
     Active Substance: METOPROLOL SUCCINATE
     Indication: HYPERTENSION
     Dosage: 100 MG, QD (STYRKE: 100 MG)
     Route: 048
     Dates: start: 20200326, end: 20200408
  23. COMBIVENT [Concomitant]
     Active Substance: ALBUTEROL SULFATE\IPRATROPIUM BROMIDE
     Indication: BRONCHOSPASM
     Dosage: 2.5 ML, UNKNOWN (STRENGTH: 2.5+0.5 MG/CONTAINER, 2.5 ML INTERMITTENT)
     Route: 055
     Dates: start: 20200329
  24. DULOXETINE. [Concomitant]
     Active Substance: DULOXETINE
     Indication: DEPRESSION
     Dosage: 30 MG, QD STYRKE: 30MG
     Route: 048
     Dates: start: 20190826
  25. ATENOLOL. [Suspect]
     Active Substance: ATENOLOL
     Dosage: 50 MG, QD
     Route: 048
     Dates: start: 20200408
  26. CIRCADIN [Concomitant]
     Active Substance: MELATONIN
     Indication: INSOMNIA
     Dosage: 4 MG, 1X/DAY
     Route: 048
     Dates: start: 20181114
  27. PANTOPRAZOLE [Concomitant]
     Active Substance: PANTOPRAZOLE
     Indication: PROPHYLAXIS AGAINST GASTROINTESTINAL ULCER
     Dosage: 20 MG, QD
     Route: 048
     Dates: start: 20170603

REACTIONS (2)
  - Dizziness [Recovering/Resolving]
  - Fall [Unknown]

NARRATIVE: CASE EVENT DATE: 2017
